FAERS Safety Report 13286666 (Version 1)
Quarter: 2017Q1

REPORT INFORMATION
  Report Type: Report from Study
  Country: BR (occurrence: BR)
  Receive Date: 20170301
  Receipt Date: 20170301
  Transmission Date: 20170428
  Serious: Yes (Other)
  Sender: FDA-Public Use
  Company Number: PHHY2017BR024074

PATIENT
  Sex: Male
  Weight: 70 kg

DRUGS (9)
  1. ALDACTONE [Concomitant]
     Active Substance: SPIRONOLACTONE
     Indication: PRODUCT USED FOR UNKNOWN INDICATION
     Dosage: 25 OT, QD (ONE AT 4 PM)
     Route: 065
  2. LASIX [Concomitant]
     Active Substance: FUROSEMIDE
     Indication: PRODUCT USED FOR UNKNOWN INDICATION
     Dosage: 0.5 DF, QD (AT 8 AM)
     Route: 065
  3. ULTIBRO BREEZHALER [Suspect]
     Active Substance: GLYCOPYRRONIUM\INDACATEROL
     Indication: CHRONIC OBSTRUCTIVE PULMONARY DISEASE
     Dosage: 1 DF(GLYCOPYRRONIUM 50 ?G AND INDACATEROL 110?G), QD
     Route: 055
     Dates: start: 20170206
  4. SIMVASTATIN. [Suspect]
     Active Substance: SIMVASTATIN
     Indication: PRODUCT USED FOR UNKNOWN INDICATION
     Dosage: 1 DF, QD (AT NIGHT AT 8 PM)
     Route: 065
  5. ASA [Concomitant]
     Active Substance: ASPIRIN
     Indication: PRODUCT USED FOR UNKNOWN INDICATION
     Dosage: 2 DF, QD
     Route: 065
  6. CARVEDILOL. [Suspect]
     Active Substance: CARVEDILOL
     Indication: PRODUCT USED FOR UNKNOWN INDICATION
     Dosage: 1 DF, BID (ONE AT 8 AM AND ONE AT 8 PM)
     Route: 065
  7. DIAZEPAN [Suspect]
     Active Substance: DIAZEPAM
     Indication: PSYCHOMOTOR HYPERACTIVITY
     Dosage: 5 DF, UNK
     Route: 048
  8. LOSARTAN. [Suspect]
     Active Substance: LOSARTAN
     Indication: PRODUCT USED FOR UNKNOWN INDICATION
     Dosage: 50 ML, BID (AT 8 AM AND 8 PM)
     Route: 065
  9. DIAZEPAN [Suspect]
     Active Substance: DIAZEPAM
     Indication: AGITATION
     Dosage: 0.5 DF, UNK
     Route: 048

REACTIONS (22)
  - Visual impairment [Unknown]
  - Diarrhoea [Unknown]
  - Dizziness [Recovered/Resolved]
  - Oropharyngeal pain [Unknown]
  - Dry mouth [Unknown]
  - Limb discomfort [Unknown]
  - Malaise [Unknown]
  - Oral pain [Not Recovered/Not Resolved]
  - Pharyngeal oedema [Not Recovered/Not Resolved]
  - Peripheral coldness [Not Recovered/Not Resolved]
  - Paraesthesia [Not Recovered/Not Resolved]
  - Insomnia [Unknown]
  - Arrhythmia [Unknown]
  - Drug intolerance [Unknown]
  - Dyspnoea [Unknown]
  - Throat irritation [Not Recovered/Not Resolved]
  - Gingival pain [Unknown]
  - Infarction [Unknown]
  - Heart rate increased [Unknown]
  - Tooth injury [Unknown]
  - Loose tooth [Unknown]
  - Hypoaesthesia [Unknown]
